FAERS Safety Report 9759638 (Version 3)
Quarter: 2014Q1

REPORT INFORMATION
  Report Type: Spontaneous
  Country: JP (occurrence: JP)
  Receive Date: 20131216
  Receipt Date: 20140317
  Transmission Date: 20141002
  Serious: Yes (Disabling)
  Sender: FDA-Public Use
  Company Number: JP-009507513-1311JPN008830

PATIENT
  Age: 51 Year
  Sex: Male
  Weight: 80 kg

DRUGS (5)
  1. SINGULAIR TABLETS 10MG [Suspect]
     Dosage: 10 MG, QD
     Route: 048
     Dates: start: 20131101, end: 20131230
  2. NEXIUM [Concomitant]
     Dosage: 20 MG, QD
     Route: 048
  3. NEXIUM [Concomitant]
     Dosage: 10 MG, QD
     Route: 048
     Dates: start: 20131101, end: 20131230
  4. ADOAIR [Concomitant]
     Dosage: 2 SPRAYS/ DAY
     Route: 055
  5. ADOAIR [Concomitant]
     Dosage: 2 SPRAYS/ DAY
     Route: 055
     Dates: start: 20131101, end: 20131230

REACTIONS (2)
  - Jaundice [Recovered/Resolved]
  - Hepatic function abnormal [Recovered/Resolved]
